FAERS Safety Report 4439564-0 (Version None)
Quarter: 2004Q3

REPORT INFORMATION
  Report Type: 
  Country: None (occurrence: None)
  Receive Date: 20040902
  Receipt Date: 20040825
  Transmission Date: 20050211
  Serious: Yes (Hospitalization)
  Sender: FDA-Public Use
  Company Number: US-JNJFOC-20040809604

PATIENT
  Sex: Female

DRUGS (27)
  1. REMICADE [Suspect]
     Route: 042
  2. REMICADE [Suspect]
     Indication: RHEUMATOID ARTHRITIS
     Route: 042
  3. PLAVIX [Concomitant]
  4. TOPROL-XL [Concomitant]
  5. ALTACE [Concomitant]
  6. ZOCOR [Concomitant]
  7. ASPIRIN [Concomitant]
  8. NITRO QUICK [Concomitant]
  9. ADVAIR DISKUS 100/50 [Concomitant]
  10. ADVAIR DISKUS 100/50 [Concomitant]
     Indication: ASTHMA
  11. IMURAN [Concomitant]
  12. PREVACID [Concomitant]
  13. REQUIP [Concomitant]
  14. LIMBITROL [Concomitant]
  15. LIMBITROL [Concomitant]
  16. ELEVIL [Concomitant]
  17. ELEVIL [Concomitant]
  18. PHOSAMAX [Concomitant]
  19. LORCET-HD [Concomitant]
  20. LORCET-HD [Concomitant]
  21. PROSOM [Concomitant]
  22. METOCLOPRAMIDE [Concomitant]
  23. LONOX [Concomitant]
  24. LONOX [Concomitant]
  25. TRILEPTAL [Concomitant]
  26. RITALIN [Concomitant]
  27. CALCIUM [Concomitant]

REACTIONS (1)
  - CARDIAC DISORDER [None]
